FAERS Safety Report 25569134 (Version 5)
Quarter: 2025Q4

REPORT INFORMATION
  Report Type: Report from Study
  Country: EU (occurrence: EU)
  Receive Date: 20250716
  Receipt Date: 20251007
  Transmission Date: 20260117
  Serious: Yes (Hospitalization, Other)
  Sender: MYLAN
  Company Number: EU-ABBVIE-6275416

PATIENT
  Age: 69 Year
  Sex: Male

DRUGS (13)
  1. CLOZAPINE [Suspect]
     Active Substance: CLOZAPINE
     Indication: Product used for unknown indication
     Dosage: UNK
  2. CLOZAPINE [Suspect]
     Active Substance: CLOZAPINE
     Dosage: HALVED THE DAILY DOSE
  3. FOSCARBIDOPA\FOSLEVODOPA [Suspect]
     Active Substance: FOSCARBIDOPA\FOSLEVODOPA
     Indication: Parkinson^s disease
     Dosage: (SD: 0.30 ML), CRN: 0.15 ML/H, CR: 0.17 ML/H, CRH: 0.20 ML/H, ED: 0.15 ML
     Dates: start: 20250506, end: 20250506
  4. FOSCARBIDOPA\FOSLEVODOPA [Suspect]
     Active Substance: FOSCARBIDOPA\FOSLEVODOPA
     Dosage: (SD: 0.30 ML), CRN: 0.15 ML/H, CR: 0.15 ML/H, CRH: 0.17 ML/H, ED: 0.15 ML,
     Dates: start: 20250507, end: 20250507
  5. FOSCARBIDOPA\FOSLEVODOPA [Suspect]
     Active Substance: FOSCARBIDOPA\FOSLEVODOPA
     Dosage: (SD: 0.3 ML), CRN: 0.15 ML/H, CR: 0.15 ML/H, CRH: 0.17 ML/H, ED: 0.10 ML., EXTRA DOSE OF 0.10 ML
     Dates: start: 20250508, end: 20250508
  6. FOSCARBIDOPA\FOSLEVODOPA [Suspect]
     Active Substance: FOSCARBIDOPA\FOSLEVODOPA
     Dosage: STARTING RATES: (SD: 0.3 ML), CRN: 0.15 ML/H, CR: 0.20 ML/H, CRH: 0.22 ML, ED: 0,15 ML
     Dates: start: 20250508, end: 20250511
  7. FOSCARBIDOPA\FOSLEVODOPA [Suspect]
     Active Substance: FOSCARBIDOPA\FOSLEVODOPA
     Dosage: (SD:0.3 ML), CRN: 0.15 ML/H, CR: 0.25 ML/H, CRH: 0.27 ML/H, ED: 0.20 ML.
     Dates: start: 20250511, end: 20250512
  8. FOSCARBIDOPA\FOSLEVODOPA [Suspect]
     Active Substance: FOSCARBIDOPA\FOSLEVODOPA
     Dosage: (SD:0.3 ML), CRN: 0.15 ML/H, CR: 0.25 ML/H, CRH: 0.27 ML/H, ED: 0.20 ML.LAST ADMIN DATE: 2025
  9. FOSCARBIDOPA\FOSLEVODOPA [Suspect]
     Active Substance: FOSCARBIDOPA\FOSLEVODOPA
     Dosage: CRN: 0.15 ML/H, CR: 0.20 ML/H, CRH: 0.21 ML/H, ED: 0.10 ML
  10. FOSCARBIDOPA\FOSLEVODOPA [Suspect]
     Active Substance: FOSCARBIDOPA\FOSLEVODOPA
     Dosage: DOSAGE: CRN: 0.15 ML/H, CR: 0.20 ML/H, CRH: 0.21 ML/H, ED: 0.10 ML
  11. FOSCARBIDOPA\FOSLEVODOPA [Suspect]
     Active Substance: FOSCARBIDOPA\FOSLEVODOPA
     Dosage: CRN: 0.15ML/H, CR: 0.19ML/H, CRH: 0.21ML/H, ED: 0.10ML
  12. XADAGO [Suspect]
     Active Substance: SAFINAMIDE MESYLATE
     Indication: Product used for unknown indication
     Dosage: 50 MILLIGRAM, QD (IN THE MORNING)
  13. ONGENTYS [Concomitant]
     Active Substance: OPICAPONE
     Indication: Product used for unknown indication
     Dosage: 50 MILLIGRAM, QD (IN THE MORNING)

REACTIONS (9)
  - Hypokinesia [Not Recovered/Not Resolved]
  - Urinary retention [Recovered/Resolved]
  - Hyperkinesia [Not Recovered/Not Resolved]
  - Dyskinesia [Not Recovered/Not Resolved]
  - On and off phenomenon [Not Recovered/Not Resolved]
  - Infusion site reaction [Unknown]
  - Constipation [Not Recovered/Not Resolved]
  - Therapeutic product effect incomplete [Unknown]
  - Therapeutic product effect variable [Not Recovered/Not Resolved]

NARRATIVE: CASE EVENT DATE: 20250101
